FAERS Safety Report 5437381-6 (Version None)
Quarter: 2007Q3

REPORT INFORMATION
  Report Type: 
  Country: None (occurrence: None)
  Receive Date: 20070831
  Receipt Date: 20070828
  Transmission Date: 20080115
  Serious: Yes (Hospitalization)
  Sender: FDA-Public Use
  Company Number: US-MERCK-0706USA04354

PATIENT
  Age: 50 Year
  Sex: Female
  Weight: 81 kg

DRUGS (4)
  1. JANUVIA [Suspect]
     Indication: TYPE 2 DIABETES MELLITUS
     Route: 048
     Dates: start: 20070614, end: 20070617
  2. METFORMIN [Concomitant]
     Route: 065
  3. ZOLOFT [Concomitant]
     Route: 065
  4. LISINOPRIL [Concomitant]
     Route: 065

REACTIONS (5)
  - ABDOMINAL PAIN LOWER [None]
  - DYSPNOEA [None]
  - MASTOIDITIS [None]
  - PANIC ATTACK [None]
  - SYNCOPE VASOVAGAL [None]
